FAERS Safety Report 7779865-1 (Version None)
Quarter: 2011Q3

REPORT INFORMATION
  Report Type: 
  Country: None (occurrence: None)
  Receive Date: 20110927
  Receipt Date: 20110916
  Transmission Date: 20111222
  Serious: Yes (Other)
  Sender: FDA-Public Use
  Company Number: US-BAYER-2011-079865

PATIENT
  Age: 25 Year
  Sex: Female

DRUGS (1)
  1. MIRENA [Suspect]
     Indication: CONTRACEPTION
     Dosage: UNK
     Route: 015
     Dates: start: 20100628, end: 20110512

REACTIONS (4)
  - ABORTION SPONTANEOUS [None]
  - VAGINAL HAEMORRHAGE [None]
  - MEDICAL DEVICE COMPLICATION [None]
  - PREGNANCY WITH CONTRACEPTIVE DEVICE [None]
